FAERS Safety Report 6567968-9 (Version None)
Quarter: 2010Q1

REPORT INFORMATION
  Report Type: 
  Country: None (occurrence: None)
  Receive Date: 20100203
  Receipt Date: 20100125
  Transmission Date: 20100710
  Serious: Yes (Other)
  Sender: FDA-Public Use
  Company Number: FR-ASTRAZENECA-2009SE28539

PATIENT
  Age: 25731 Day
  Sex: Male

DRUGS (8)
  1. ZESTORETIC [Suspect]
     Indication: HYPERTENSION
     Dosage: 20/12.5 MG DAILY
     Route: 048
     Dates: start: 20090901, end: 20091022
  2. LAMICTAL [Suspect]
     Indication: EPILEPSY
     Route: 048
     Dates: start: 20090901, end: 20091019
  3. LAMICTAL [Suspect]
     Route: 048
     Dates: start: 20091020, end: 20091102
  4. AMLODIPINE [Concomitant]
     Route: 048
  5. PREVISCAN [Concomitant]
     Route: 048
     Dates: start: 19930101
  6. IMOVANE [Concomitant]
     Route: 048
     Dates: start: 19930101
  7. KEPPRA [Concomitant]
     Indication: EPILEPSY
     Route: 048
     Dates: end: 20090901
  8. KEPPRA [Concomitant]
     Route: 048
     Dates: start: 20090901

REACTIONS (2)
  - HYPERTRANSAMINASAEMIA [None]
  - RASH MACULO-PAPULAR [None]
